FAERS Safety Report 4287487-2 (Version None)
Quarter: 2004Q1

REPORT INFORMATION
  Report Type: 
  Country: None (occurrence: None)
  Receive Date: 20040209
  Receipt Date: 20030709
  Transmission Date: 20041129
  Serious: No
  Sender: FDA-Public Use
  Company Number: US-GLAXOSMITHKLINE-A0415853A

PATIENT
  Sex: Female

DRUGS (1)
  1. PAXIL CR [Suspect]
     Indication: ANXIETY
     Route: 048
     Dates: start: 20030601

REACTIONS (4)
  - EYE IRRITATION [None]
  - EYE REDNESS [None]
  - INSOMNIA [None]
  - KERATOCONJUNCTIVITIS SICCA [None]
